FAERS Safety Report 16764132 (Version 1)
Quarter: 2019Q3

REPORT INFORMATION
  Report Type: Spontaneous
  Country: DE (occurrence: DE)
  Receive Date: 20190902
  Receipt Date: 20190902
  Transmission Date: 20191005
  Serious: Yes (Other)
  Sender: FDA-Public Use
  Company Number: DE-ASTRAZENECA-2019SF24937

PATIENT
  Age: 58 Year
  Sex: Male

DRUGS (2)
  1. ZOLMITRIPTAN. [Suspect]
     Active Substance: ZOLMITRIPTAN
     Indication: MIGRAINE
     Dosage: UNK
     Route: 065
  2. PETADOLEX [Suspect]
     Active Substance: HERBALS
     Indication: MIGRAINE
     Route: 065

REACTIONS (1)
  - Hepatitis acute [Unknown]
